FAERS Safety Report 11801445 (Version 4)
Quarter: 2020Q2

REPORT INFORMATION
  Report Type: Spontaneous
  Country: US (occurrence: US)
  Receive Date: 20151204
  Receipt Date: 20200504
  Transmission Date: 20200713
  Serious: Yes (Hospitalization, Other)
  Sender: FDA-Public Use
  Company Number: US-ABBVIE-15P-163-1510948-00

PATIENT
  Age: 57 Year
  Sex: Female

DRUGS (1)
  1. CREON [Suspect]
     Active Substance: PANCRELIPASE AMYLASE\PANCRELIPASE LIPASE\PANCRELIPASE PROTEASE
     Indication: PRODUCT USED FOR UNKNOWN INDICATION
     Route: 065

REACTIONS (6)
  - Sinusitis [Unknown]
  - Diabetes mellitus [Unknown]
  - Lung transplant [Unknown]
  - Hospitalisation [Unknown]
  - Skin laceration [Unknown]
  - Immunodeficiency [Unknown]

NARRATIVE: CASE EVENT DATE: 2012
